FAERS Safety Report 21718307 (Version 2)
Quarter: 2023Q1

REPORT INFORMATION
  Report Type: Report from Study
  Country: PL (occurrence: PL)
  Receive Date: 20221212
  Receipt Date: 20230105
  Transmission Date: 20230417
  Serious: Yes (Hospitalization, Other)
  Sender: FDA-Public Use
  Company Number: PL-BRISTOL-MYERS SQUIBB COMPANY-2022-148673

PATIENT
  Age: 57 Year
  Sex: Female
  Weight: 116 kg

DRUGS (11)
  1. PENTASA [Concomitant]
     Active Substance: MESALAMINE
     Indication: Crohn^s disease
     Dosage: 1 DOSAGE FORM = 1 SACHET
     Dates: start: 201707
  2. POLFILIN PROLONGATUM [Concomitant]
     Indication: Thrombophlebitis
     Dosage: 1 DF=1 TABLET
     Dates: start: 20110707
  3. DUSPATALIN RETARD [Concomitant]
     Indication: Crohn^s disease
     Dosage: 1 DF=1 TABLET
     Dates: start: 20110303
  4. BISOPROLOL [Concomitant]
     Active Substance: BISOPROLOL
     Indication: Hypertension
     Dosage: 1DF=1 TABLET
     Dates: start: 20170206
  5. RAMIPRIL [Concomitant]
     Active Substance: RAMIPRIL
     Indication: Hypertension
     Dosage: 1DF=1 TABLET
     Dates: start: 20170206
  6. NOLPLAZA [Concomitant]
     Indication: Gastritis
     Dosage: 1 DOSAGE FORM = 1 TABLET
     Dates: start: 20151201
  7. NOLPLAZA [Concomitant]
     Indication: Duodenitis
  8. POTASSIUM CHLORIDE [Concomitant]
     Active Substance: POTASSIUM CHLORIDE
     Indication: Hypokalaemia
     Dosage: 1 DF=1 TABLET
     Dates: start: 20150115
  9. SPIRONOLACTONE [Concomitant]
     Active Substance: SPIRONOLACTONE
     Indication: Hypokalaemia
     Dosage: 1DF=1 TABLET
     Dates: start: 20111103
  10. XARELTO [Concomitant]
     Active Substance: RIVAROXABAN
     Indication: Thrombophlebitis
     Dates: start: 20220112
  11. FOLIC ACID [Concomitant]
     Active Substance: FOLIC ACID
     Indication: Prophylaxis
     Dosage: 1 DF= 1TABLET
     Dates: start: 20150819

REACTIONS (1)
  - Basal cell carcinoma [Recovered/Resolved]

NARRATIVE: CASE EVENT DATE: 20221102
